FAERS Safety Report 9745686 (Version 3)
Quarter: 2014Q1

REPORT INFORMATION
  Report Type: Spontaneous
  Country: US (occurrence: US)
  Receive Date: 20131211
  Receipt Date: 20140218
  Transmission Date: 20141002
  Serious: Yes (Other)
  Sender: FDA-Public Use
  Company Number: US-PFIZER INC-2013348430

PATIENT
  Age: 72 Year
  Sex: Male

DRUGS (6)
  1. INLYTA [Suspect]
     Indication: MALIGNANT MELANOMA
     Dosage: 5 MG, 1X/DAY
     Route: 048
     Dates: start: 20131029
  2. INLYTA [Suspect]
     Dosage: 5 MG, 1X/DAY
     Route: 048
     Dates: start: 20131112
  3. INLYTA [Suspect]
     Dosage: 2.5 MG, 1X/DAY
     Route: 048
  4. INLYTA [Suspect]
     Dosage: 5 MG, 1X/DAY
  5. FLEXERIL [Concomitant]
     Indication: PAIN
  6. TYLENOL [Concomitant]
     Indication: PAIN

REACTIONS (6)
  - Fatigue [Recovering/Resolving]
  - Decreased appetite [Recovering/Resolving]
  - Epistaxis [Recovered/Resolved]
  - Off label use [Unknown]
  - Dysphonia [Unknown]
  - Blood pressure increased [Unknown]
